FAERS Safety Report 9596258 (Version 4)
Quarter: 2014Q1

REPORT INFORMATION
  Report Type: Spontaneous
  Country: CO (occurrence: CO)
  Receive Date: 20131004
  Receipt Date: 20140124
  Transmission Date: 20141002
  Serious: Yes (Hospitalization)
  Sender: FDA-Public Use
  Company Number: CO-BAXTER-2013BAX038277

PATIENT
  Age: 75 Year
  Sex: Female
  Weight: 100 kg

DRUGS (3)
  1. AGUA ESTERIL PARA INYECCION USP [Suspect]
     Indication: OXYGEN SUPPLEMENTATION
     Route: 055
     Dates: start: 20130901, end: 20130926
  2. AGUA ESTERIL PARA INYECCION USP [Suspect]
     Indication: STOMA CARE
  3. AMLODIPINE [Concomitant]
     Indication: PRODUCT USED FOR UNKNOWN INDICATION
     Route: 048

REACTIONS (1)
  - Upper respiratory tract infection [Recovered/Resolved]
